FAERS Safety Report 24061667 (Version 1)
Quarter: 2024Q3

REPORT INFORMATION
  Report Type: Spontaneous
  Country: US (occurrence: None)
  Receive Date: 20240706
  Receipt Date: 20240706
  Transmission Date: 20241016
  Serious: No
  Sender: Public
  Company Number: None

PATIENT
  Age: 64 Year
  Sex: Male

DRUGS (1)
  1. GEMTESA [Suspect]
     Active Substance: VIBEGRON

REACTIONS (3)
  - Proctitis [None]
  - Proctalgia [None]
  - Hyperhidrosis [None]

NARRATIVE: CASE EVENT DATE: 19600317
